FAERS Safety Report 9781772 (Version 1)
Quarter: 2013Q4

REPORT INFORMATION
  Report Type: Spontaneous
  Country: US (occurrence: US)
  Receive Date: 20131225
  Receipt Date: 20131225
  Transmission Date: 20140711
  Serious: Yes (Other)
  Sender: FDA-Public Use
  Company Number: US-ROCHE-1319403

PATIENT
  Age: 38 Year
  Sex: Female

DRUGS (3)
  1. PERJETA [Suspect]
     Indication: BREAST CANCER METASTATIC
     Route: 065
  2. HERCEPTIN [Suspect]
     Indication: BREAST CANCER METASTATIC
     Route: 065
  3. DOCETAXEL [Concomitant]
     Indication: BREAST CANCER METASTATIC

REACTIONS (5)
  - Motor dysfunction [Unknown]
  - Cerebral infarction [Unknown]
  - Aphasia [Unknown]
  - Muscular weakness [Unknown]
  - Demyelination [Unknown]
